FAERS Safety Report 11895186 (Version 5)
Quarter: 2016Q2

REPORT INFORMATION
  Report Type: Spontaneous
  Country: US (occurrence: US)
  Receive Date: 20160107
  Receipt Date: 20160426
  Transmission Date: 20160815
  Serious: Yes (Other)
  Sender: FDA-Public Use
  Company Number: US-PFIZER INC-2015448276

PATIENT
  Age: 31 Year
  Sex: Female

DRUGS (4)
  1. FOLIC ACID. [Concomitant]
     Active Substance: FOLIC ACID
     Dosage: UNK
  2. PREDNISONE. [Concomitant]
     Active Substance: PREDNISONE
  3. TRAMADOL HCL [Concomitant]
     Active Substance: TRAMADOL HYDROCHLORIDE
  4. XELJANZ [Suspect]
     Active Substance: TOFACITINIB CITRATE
     Indication: RHEUMATOID ARTHRITIS
     Dosage: 5 MG, 2X/DAY
     Route: 048

REACTIONS (10)
  - Somnolence [Unknown]
  - Nasopharyngitis [Unknown]
  - Anxiety [Unknown]
  - Pain in extremity [Unknown]
  - Rheumatoid arthritis [Unknown]
  - Intentional product misuse [Unknown]
  - Activities of daily living impaired [Unknown]
  - Condition aggravated [Unknown]
  - Drug dose omission [Unknown]
  - Arthralgia [Unknown]
